FAERS Safety Report 6656663-3 (Version None)
Quarter: 2010Q1

REPORT INFORMATION
  Report Type: 
  Country: None (occurrence: None)
  Receive Date: 20100329
  Receipt Date: 20100316
  Transmission Date: 20100710
  Serious: Yes (Other)
  Sender: FDA-Public Use
  Company Number: US-ELI_LILLY_AND_COMPANY-US201003005612

PATIENT
  Sex: Female
  Weight: 113.38 kg

DRUGS (10)
  1. ZYPREXA [Suspect]
     Indication: SCHIZOAFFECTIVE DISORDER
     Dosage: 15 MG, EACH EVENING
     Dates: start: 20080101
  2. ZYPREXA [Suspect]
     Dosage: 5 MG, EACH MORNING
     Dates: start: 20080101
  3. LAMICTAL CD [Concomitant]
  4. CLONAZEPAN [Concomitant]
  5. WELLBUTRIN [Concomitant]
  6. ZOLOFT [Concomitant]
  7. SKELAXIN [Concomitant]
  8. MOBIC [Concomitant]
  9. LYRICA [Concomitant]
  10. PHENTERMINE [Concomitant]

REACTIONS (3)
  - OEDEMA PERIPHERAL [None]
  - PLANTAR FASCIITIS [None]
  - WEIGHT INCREASED [None]
